FAERS Safety Report 23968365 (Version 3)
Quarter: 2024Q2

REPORT INFORMATION
  Report Type: Spontaneous
  Country: AU (occurrence: AU)
  Receive Date: 20240612
  Receipt Date: 20240617
  Transmission Date: 20240715
  Serious: Yes (Hospitalization)
  Sender: FDA-Public Use
  Company Number: AU-JNJFOC-20240623291

PATIENT

DRUGS (7)
  1. REMICADE [Suspect]
     Active Substance: INFLIXIMAB
     Indication: Crohn^s disease
     Route: 041
  2. STELARA [Suspect]
     Active Substance: USTEKINUMAB
     Indication: Crohn^s disease
     Route: 058
  3. ENTYVIO [Suspect]
     Active Substance: VEDOLIZUMAB
     Indication: Crohn^s disease
     Route: 065
  4. HUMIRA [Suspect]
     Active Substance: ADALIMUMAB
     Indication: Crohn^s disease
     Route: 065
  5. AZATHIOPRINE [Suspect]
     Active Substance: AZATHIOPRINE
     Indication: Crohn^s disease
     Route: 065
  6. CORTISONE ACETATE [Suspect]
     Active Substance: CORTISONE ACETATE
     Indication: Crohn^s disease
     Route: 042
  7. METHOTREXATE [Suspect]
     Active Substance: METHOTREXATE
     Indication: Crohn^s disease
     Route: 065

REACTIONS (13)
  - Intestinal haemorrhage [Unknown]
  - Clostridium difficile infection [Unknown]
  - Crohn^s disease [Unknown]
  - Abscess [Unknown]
  - Acne [Unknown]
  - Decreased appetite [Unknown]
  - Diarrhoea [Unknown]
  - Electrolyte depletion [Unknown]
  - Insomnia [Unknown]
  - Nasopharyngitis [Unknown]
  - Drug ineffective [Unknown]
  - Oropharyngeal pain [Unknown]
  - Pain in extremity [Unknown]
